FAERS Safety Report 7130867-8 (Version None)
Quarter: 2010Q4

REPORT INFORMATION
  Report Type: 
  Country: None (occurrence: None)
  Receive Date: 20101201
  Receipt Date: 20101122
  Transmission Date: 20110411
  Serious: Yes (Hospitalization, Other)
  Sender: FDA-Public Use
  Company Number: GB-ASTRAZENECA-2010SE55499

PATIENT
  Sex: Male
  Weight: 1.3 kg

DRUGS (32)
  1. MEROPENEM TRIHYDRATE [Suspect]
     Indication: NEONATAL INFECTION
     Route: 042
     Dates: start: 20101022, end: 20101024
  2. ALFACALCIDOL [Concomitant]
  3. ATROPINE [Concomitant]
  4. PENICILLIN G [Concomitant]
  5. CAFFEINE [Concomitant]
  6. CEFOTAXIME SODIUM [Concomitant]
  7. CHLOROTHIAZIDE [Concomitant]
  8. CUROSURF [Concomitant]
  9. DALIVIT [Concomitant]
  10. DEXAMETHASONE [Concomitant]
  11. FOLIC ACID [Concomitant]
  12. FUROSEMIDE [Concomitant]
  13. GAVISCON INFANT [Concomitant]
  14. GENTAMICIN [Concomitant]
  15. IBUPROFEN [Concomitant]
  16. INTRALIPID 10% [Concomitant]
  17. KAY CIEL DURA-TABS [Concomitant]
  18. METRONIDAZOLE [Concomitant]
  19. MIDAZOLAM [Concomitant]
  20. MORPHINE [Concomitant]
  21. NYSTATIN [Concomitant]
  22. PARACETAMOL [Concomitant]
  23. RANITIDINE [Concomitant]
  24. SODIUM BICARBONATE [Concomitant]
  25. SODIUM CHLORIDE [Concomitant]
  26. SODIUM DIHYDROGEN PHOSPHATE [Concomitant]
  27. SPIRONOLACTONE [Concomitant]
  28. SUXAMETHONIUM [Concomitant]
  29. SYTRON [Concomitant]
  30. TOCOPHEROL CONCENTRATE CAP [Concomitant]
  31. TOTAL PRENTERAL NUTRITION [Concomitant]
  32. VITLIPID [Concomitant]

REACTIONS (3)
  - CATHETER SITE RELATED REACTION [None]
  - HYPERSENSITIVITY [None]
  - THROMBOCYTOPENIA NEONATAL [None]
